FAERS Safety Report 8346781-6 (Version None)
Quarter: 2012Q2

REPORT INFORMATION
  Report Type: 
  Country: None (occurrence: None)
  Receive Date: 20120509
  Receipt Date: 20120430
  Transmission Date: 20120825
  Serious: Yes (Other)
  Sender: FDA-Public Use
  Company Number: US-SANOFI-AVENTIS-2012SA032069

PATIENT
  Sex: Female

DRUGS (4)
  1. DOCETAXEL [Suspect]
     Indication: ENDOMETRIAL CANCER STAGE III
     Dosage: OVER 60 MINUTES
     Route: 042
  2. DEXAMETHASONE [Concomitant]
     Indication: PREMEDICATION
     Route: 048
  3. CARBOPLATIN [Suspect]
     Indication: ENDOMETRIAL CANCER STAGE III
     Dosage: DOSE: AUC-6, OVER 60 MINUTES
     Route: 042
  4. ALL OTHER THERAPEUTIC PRODUCTS [Concomitant]
     Route: 042

REACTIONS (1)
  - COLECTOMY [None]
